FAERS Safety Report 9603188 (Version 2)
Quarter: 2013Q4

REPORT INFORMATION
  Report Type: Spontaneous
  Country: US (occurrence: US)
  Receive Date: 20131007
  Receipt Date: 20131112
  Transmission Date: 20140711
  Serious: Yes (Hospitalization)
  Sender: FDA-Public Use
  Company Number: US-B.I. PHARMACEUTICALS,INC./RIDGEFIELD-2013-BI-31116BP

PATIENT
  Age: 51 Year
  Sex: Female
  Weight: 91.17 kg

DRUGS (5)
  1. SPIRIVA [Suspect]
     Indication: CHRONIC OBSTRUCTIVE PULMONARY DISEASE
     Dosage: 18 MCG
     Route: 055
     Dates: start: 201304
  2. SYMBICORT [Concomitant]
     Indication: CHRONIC OBSTRUCTIVE PULMONARY DISEASE
     Dosage: 4 PUF
     Dates: start: 201304
  3. PROVENTIL [Concomitant]
     Dosage: 2 PUF
  4. OXYGEN [Concomitant]
     Dosage: DAILY DOSE: 2 L/MIN AT NIGHTTIME
  5. ALBUTEROL NEBULISER [Concomitant]

REACTIONS (2)
  - Pulmonary embolism [Not Recovered/Not Resolved]
  - Dyspnoea [Unknown]
